FAERS Safety Report 5376246-5 (Version None)
Quarter: 2007Q3

REPORT INFORMATION
  Report Type: 
  Country: None (occurrence: None)
  Receive Date: 20070702
  Receipt Date: 20070621
  Transmission Date: 20080115
  Serious: Yes (Hospitalization)
  Sender: FDA-Public Use
  Company Number: BE-ROCHE-426656

PATIENT
  Age: 71 Year
  Sex: Male
  Weight: 79 kg

DRUGS (6)
  1. PEG-INTERFERON ALFA 2A (RO 25-8310) [Suspect]
     Route: 058
     Dates: start: 20050128, end: 20050418
  2. PEG-INTERFERON ALFA 2A (RO 25-8310) [Suspect]
     Route: 058
     Dates: start: 20050425, end: 20051122
  3. RIBAVIRIN [Suspect]
     Route: 048
     Dates: start: 20050128, end: 20051123
  4. ATACAND [Concomitant]
     Dates: start: 20020101
  5. VOLTAREN [Concomitant]
     Dates: start: 20040101
  6. VIAGRA [Concomitant]
     Dates: start: 20050423

REACTIONS (1)
  - THROMBOCYTOPENIA [None]
